FAERS Safety Report 5179778-8 (Version None)
Quarter: 2006Q4

REPORT INFORMATION
  Report Type: 
  Country: None (occurrence: None)
  Receive Date: 20061212
  Receipt Date: 20061205
  Transmission Date: 20070319
  Serious: Yes (Other)
  Sender: FDA-Public Use
  Company Number: 2006149776

PATIENT
  Age: 59 Year
  Sex: Male

DRUGS (1)
  1. CETIRIZINE HCL AND PSEUDOEPHEDRINE HCL [Suspect]

REACTIONS (4)
  - BLOOD PRESSURE INCREASED [None]
  - CEREBRAL ARTERY STENOSIS [None]
  - HEART RATE INCREASED [None]
  - TRANSIENT ISCHAEMIC ATTACK [None]
